FAERS Safety Report 12114978 (Version 2)
Quarter: 2016Q2

REPORT INFORMATION
  Report Type: Spontaneous
  Country: FR (occurrence: FR)
  Receive Date: 20160225
  Receipt Date: 20160405
  Transmission Date: 20160815
  Serious: Yes (Other)
  Sender: FDA-Public Use
  Company Number: FR-ROCHE-1714789

PATIENT
  Age: 58 Year
  Sex: Male
  Weight: 80 kg

DRUGS (5)
  1. GLUCOPHAGE [Concomitant]
     Active Substance: METFORMIN HYDROCHLORIDE
     Indication: TYPE 2 DIABETES MELLITUS
     Route: 048
  2. GLIMEPIRIDE. [Concomitant]
     Active Substance: GLIMEPIRIDE
     Indication: TYPE 2 DIABETES MELLITUS
     Route: 048
  3. COTELLIC [Suspect]
     Active Substance: COBIMETINIB
     Indication: PRODUCT USED FOR UNKNOWN INDICATION
     Route: 065
     Dates: start: 20151020, end: 20160217
  4. ZELBORAF [Suspect]
     Active Substance: VEMURAFENIB
     Indication: PRODUCT USED FOR UNKNOWN INDICATION
     Dosage: REINTRODUCED ON UNSPECIFIED DATE.
     Route: 065
     Dates: start: 20151020, end: 20160125
  5. TRIATEC (FRANCE) [Concomitant]
     Active Substance: RAMIPRIL
     Indication: HYPERTENSION
     Route: 048

REACTIONS (2)
  - Capillary leak syndrome [Recovered/Resolved]
  - Iridocyclitis [Recovered/Resolved]

NARRATIVE: CASE EVENT DATE: 201601
